FAERS Safety Report 6209797-1 (Version None)
Quarter: 2009Q2

REPORT INFORMATION
  Report Type: 
  Country: None (occurrence: None)
  Receive Date: 20090601
  Receipt Date: 20090521
  Transmission Date: 20091009
  Serious: Yes (Hospitalization, Other)
  Sender: FDA-Public Use
  Company Number: PHHY2009CA18860

PATIENT
  Sex: Male

DRUGS (4)
  1. DESFERAL [Suspect]
     Indication: IRON OVERLOAD
     Dosage: UNK
  2. DECADRON [Concomitant]
     Dosage: 0.5 MG, QD
  3. EPREX [Concomitant]
     Dosage: 2000 U, QW
  4. EPOGEN [Concomitant]
     Dosage: UNK

REACTIONS (7)
  - DIALYSIS [None]
  - DRUG INEFFECTIVE [None]
  - NECROSIS [None]
  - PAIN [None]
  - RENAL FAILURE [None]
  - SERUM FERRITIN INCREASED [None]
  - VASCULAR OCCLUSION [None]
